FAERS Safety Report 5022712-1 (Version None)
Quarter: 2006Q2

REPORT INFORMATION
  Report Type: 
  Country: None (occurrence: None)
  Receive Date: 20060605
  Receipt Date: 20060517
  Transmission Date: 20061013
  Serious: Yes (Other)
  Sender: FDA-Public Use
  Company Number: MY200605003883

PATIENT
  Age: 10 Year
  Sex: Male
  Weight: 49.5 kg

DRUGS (4)
  1. STRATTERA [Suspect]
     Indication: ATTENTION DEFICIT/HYPERACTIVITY DISORDER
     Dosage: 40 MG, DAILY (1/D), ORAL
     Route: 048
     Dates: start: 20060117, end: 20060429
  2. HALOPERIDOL [Concomitant]
  3. LINDANE (LINDANE) [Concomitant]
  4. RITALIN [Concomitant]

REACTIONS (1)
  - SEXUAL ABUSE [None]
